FAERS Safety Report 5282576-8 (Version None)
Quarter: 2007Q1

REPORT INFORMATION
  Report Type: 
  Country: None (occurrence: None)
  Receive Date: 20070326
  Receipt Date: 20070312
  Transmission Date: 20070707
  Serious: Yes (Hospitalization)
  Sender: FDA-Public Use
  Company Number: 171751

PATIENT
  Age: 54 Year
  Sex: Female

DRUGS (9)
  1. AVONEX [Suspect]
     Indication: MULTIPLE SCLEROSIS
     Dosage: 30 UG;QW
     Dates: start: 20010420
  2. MONOPRIL [Concomitant]
  3. CLONIDINE [Concomitant]
  4. DITROPAN [Concomitant]
  5. COUMADIN [Concomitant]
  6. MS CONTIN [Concomitant]
  7. ATIVAN [Concomitant]
  8. MICRONASE [Concomitant]
  9. GLUCOPHAGE [Concomitant]

REACTIONS (3)
  - FALL [None]
  - GALLBLADDER DISORDER [None]
  - THROMBOPHLEBITIS [None]
